FAERS Safety Report 7949604-X (Version None)
Quarter: 2011Q4

REPORT INFORMATION
  Report Type: 
  Country: None (occurrence: None)
  Receive Date: 20111130
  Receipt Date: 20111123
  Transmission Date: 20120403
  Serious: Yes (Death, Other)
  Sender: FDA-Public Use
  Company Number: US-CELGENEUS-163-21880-11091973

PATIENT
  Sex: Female

DRUGS (7)
  1. BACTRIM DS [Concomitant]
     Route: 065
     Dates: start: 20110909, end: 20110925
  2. ERTAPENEM [Concomitant]
     Indication: SEPSIS
     Dosage: 1000 MILLIGRAM
     Route: 041
     Dates: start: 20110912, end: 20110923
  3. REVLIMID [Suspect]
     Indication: LYMPHOMA
     Dosage: 25 MILLIGRAM
     Route: 048
     Dates: start: 20110802, end: 20110925
  4. ONDANSETRON [Concomitant]
     Indication: NAUSEA
     Dosage: 8 MILLIGRAM
     Route: 041
     Dates: start: 20110909, end: 20110925
  5. PANTOPRAZOLE [Concomitant]
     Dosage: 40 MILLIGRAM
     Route: 041
     Dates: start: 20110911, end: 20110925
  6. REVLIMID [Suspect]
     Dosage: 15 MILLIGRAM
     Route: 048
     Dates: start: 20110915, end: 20110920
  7. FLUCONAZOLE [Concomitant]
     Indication: ANTIFUNGAL PROPHYLAXIS
     Dosage: 400 MILLIGRAM
     Route: 065
     Dates: start: 20110911, end: 20110925

REACTIONS (4)
  - LYMPHOMA [None]
  - THROMBOCYTOPENIA [None]
  - DEATH [None]
  - SEPSIS [None]
